FAERS Safety Report 6326805-8 (Version None)
Quarter: 2009Q3

REPORT INFORMATION
  Report Type: 
  Country: None (occurrence: None)
  Receive Date: 20090821
  Receipt Date: 20090814
  Transmission Date: 20100115
  Serious: Yes (Death)
  Sender: FDA-Public Use
  Company Number: GB-EBEWE-1187MTX09

PATIENT
  Age: 80 Year
  Sex: Female
  Weight: 84 kg

DRUGS (8)
  1. METHOTREXATE [Suspect]
     Indication: RHEUMATOID ARTHRITIS
     Dosage: 10 MG, QWEEKLY, ORAL
     Route: 048
     Dates: start: 20090306, end: 20090319
  2. ATENOLOL [Concomitant]
  3. CO-CODAMOL [Concomitant]
  4. FOLIC ACID [Concomitant]
  5. LANSOPRAZOLE [Concomitant]
  6. LOSARTAN [Concomitant]
  7. PREDNISOLONE [Concomitant]
  8. SPIRIVA [Concomitant]

REACTIONS (1)
  - MULTI-ORGAN FAILURE [None]
